FAERS Safety Report 7816196-5 (Version None)
Quarter: 2011Q4

REPORT INFORMATION
  Report Type: 
  Country: None (occurrence: None)
  Receive Date: 20111015
  Receipt Date: 20111011
  Transmission Date: 20120403
  Serious: Yes (Other)
  Sender: FDA-Public Use
  Company Number: US-ROCHE-760224

PATIENT
  Sex: Female

DRUGS (4)
  1. DEPAKOTE [Concomitant]
  2. TOPAMAX [Concomitant]
  3. CALCIUM CARBONATE [Concomitant]
  4. BONIVA [Suspect]
     Indication: OSTEOPENIA
     Route: 065

REACTIONS (3)
  - FEMUR FRACTURE [None]
  - MYALGIA [None]
  - BONE PAIN [None]
